FAERS Safety Report 4507372-8 (Version None)
Quarter: 2004Q4

REPORT INFORMATION
  Report Type: 
  Country: None (occurrence: None)
  Receive Date: 20041119
  Receipt Date: 20041105
  Transmission Date: 20050328
  Serious: Yes (Death, Other)
  Sender: FDA-Public Use
  Company Number: 2004S1001045

PATIENT
  Age: 90 Year
  Sex: Male
  Weight: 72.5755 kg

DRUGS (7)
  1. METOPROLOL TARTRATE [Suspect]
     Indication: CARDIAC FAILURE CONGESTIVE
     Dosage: 25MG TID, ORAL
     Route: 048
     Dates: start: 20040310, end: 20040410
  2. METOPROLOL TARTRATE [Suspect]
     Indication: HYPERTENSION
     Dosage: 25MG TID, ORAL
     Route: 048
     Dates: start: 20040310, end: 20040410
  3. ACETAMINOPHEN [Concomitant]
  4. EYE DROPS [Concomitant]
  5. PANTOPRAZOLE [Concomitant]
  6. ZINC [Concomitant]
  7. METOPROLOL [Concomitant]

REACTIONS (11)
  - ABDOMINAL PAIN UPPER [None]
  - ASTHENIA [None]
  - DYSGEUSIA [None]
  - GALLBLADDER CANCER [None]
  - GLOSSODYNIA [None]
  - OEDEMA MOUTH [None]
  - OEDEMA PERIPHERAL [None]
  - SKIN ULCER [None]
  - SOMNOLENCE [None]
  - SWELLING FACE [None]
  - SWOLLEN TONGUE [None]
